FAERS Safety Report 5771306-9 (Version None)
Quarter: 2008Q2

REPORT INFORMATION
  Report Type: 
  Country: None (occurrence: None)
  Receive Date: 20080613
  Receipt Date: 20080606
  Transmission Date: 20081010
  Serious: Yes (Other)
  Sender: FDA-Public Use
  Company Number: US-BAYER-200813891NA

PATIENT
  Age: 31 Year
  Sex: Female
  Weight: 100 kg

DRUGS (3)
  1. MIRENA [Suspect]
     Indication: CONTRACEPTION
     Route: 015
     Dates: start: 20070201, end: 20080226
  2. WELLBUTRIN [Concomitant]
     Indication: ANXIETY
     Route: 048
  3. LORATADINE [Concomitant]
     Route: 048

REACTIONS (9)
  - ABDOMINAL PAIN [None]
  - ADHESION [None]
  - BACK PAIN [None]
  - HYDROMETRA [None]
  - IUCD COMPLICATION [None]
  - MASS [None]
  - MENORRHAGIA [None]
  - UTERINE RUPTURE [None]
  - VAGINAL HAEMORRHAGE [None]
